FAERS Safety Report 6458719-7 (Version None)
Quarter: 2009Q4

REPORT INFORMATION
  Report Type: 
  Country: None (occurrence: None)
  Receive Date: 20091127
  Receipt Date: 20091105
  Transmission Date: 20100525
  Serious: No
  Sender: FDA-Public Use
  Company Number: US-ROCHE-669037

PATIENT
  Age: 5 Month
  Sex: Male
  Weight: 6.4 kg

DRUGS (3)
  1. TAMIFLU [Suspect]
     Indication: INFLUENZA
     Dosage: FORM: COMPOUNDED SUSPENSION; STRENGTH: 15 MG/ML; TOTAL OF 4 DOSES; MEDICATION ERROR
     Route: 048
     Dates: start: 20091101, end: 20091102
  2. PREVACID [Concomitant]
  3. OMNICEF [Concomitant]
     Dosage: STRENGTH: 125MG/ML
     Dates: start: 20091101

REACTIONS (2)
  - DIARRHOEA [None]
  - INCORRECT DOSE ADMINISTERED [None]
